FAERS Safety Report 4749027-0 (Version None)
Quarter: 2005Q3

REPORT INFORMATION
  Report Type: 
  Country: None (occurrence: None)
  Receive Date: 20050817
  Receipt Date: 20050808
  Transmission Date: 20060218
  Serious: Yes (Other)
  Sender: FDA-Public Use
  Company Number: 2005112429

PATIENT
  Age: 60 Year
  Sex: Female

DRUGS (8)
  1. RELPAX [Suspect]
     Indication: MIGRAINE
     Dosage: 40 MG (1 D), ORAL
     Route: 048
     Dates: start: 20050701
  2. ALL OTHER THERAPEUTIC PRODUCTS (ALL OTHER THERAPEUTIC PRODUCTS) [Suspect]
     Indication: ILL-DEFINED DISORDER
  3. ANTIPSYCHOTICS (ANTIPSYCHOTICS) [Concomitant]
  4. ANTIDEPRESSANTS (ANTIDEPRESSANTS) [Concomitant]
  5. SERUMLIPIDREDUCING AGENTS (SERUMLIPIDREDUCING AGENTS) [Concomitant]
  6. OTHER ANALGESICS AND ANTIPYRETICS (OTHER ANALGESICS AND ANTIPYRETICS) [Concomitant]
  7. HERBAL PREPARATION (HERBAL PREPARATION) [Concomitant]
  8. HYPNOTICS AND SEDATIVES (HYPNOTICS AND SEDATIVES) [Concomitant]

REACTIONS (2)
  - CARDIAC FAILURE [None]
  - PYREXIA [None]
